FAERS Safety Report 21425909 (Version 3)
Quarter: 2024Q3

REPORT INFORMATION
  Report Type: Spontaneous
  Country: GB (occurrence: GB)
  Receive Date: 20221008
  Receipt Date: 20240902
  Transmission Date: 20241016
  Serious: Yes (Hospitalization, Other)
  Sender: TEVA
  Company Number: GB-BAXTER-2022BAX017429

PATIENT
  Age: 64 Year
  Sex: Female
  Weight: 59 kg

DRUGS (9)
  1. FLUDARABINE [Suspect]
     Active Substance: FLUDARABINE PHOSPHATE
     Indication: Non-small cell lung cancer
     Dosage: 50 MG,1 IN 1 D, DURATION: 3 DAYS
     Route: 042
     Dates: start: 20220302, end: 20220304
  2. CYCLOPHOSPHAMIDE [Suspect]
     Active Substance: CYCLOPHOSPHAMIDE
     Indication: Non-small cell lung cancer
     Dosage: 540 MG,1 IN 1 D, DURATION: 3 DAYS
     Route: 042
     Dates: start: 20220302, end: 20220304
  3. INTERLEUKIN NOS [Suspect]
     Active Substance: INTERLEUKIN NOS
     Indication: Non-small cell lung cancer
     Dosage: 1.71 MIU (1.7 ML) (1 IN 1 D), DURATION: 10 DAYS
     Route: 058
     Dates: start: 20220308, end: 20220317
  4. VALPROIC ACID [Concomitant]
     Active Substance: VALPROIC ACID
     Indication: Product used for unknown indication
     Dosage: UNK
     Route: 065
     Dates: start: 202111
  5. DEXAMETHASONE [Concomitant]
     Active Substance: DEXAMETHASONE
     Indication: Product used for unknown indication
     Dosage: UNK
     Route: 065
     Dates: start: 20220704
  6. CARBOHYDRATES\FATTY ACIDS\MINERALS\PROTEIN\VITAMINS [Concomitant]
     Active Substance: CARBOHYDRATES\FATTY ACIDS\MINERALS\PROTEIN\VITAMINS
     Indication: Product used for unknown indication
     Dosage: UNK
     Route: 065
     Dates: start: 20220704
  7. AMLODIPINE [Concomitant]
     Active Substance: AMLODIPINE BESYLATE
     Indication: Product used for unknown indication
     Dosage: UNK
     Route: 065
     Dates: start: 20211231
  8. SERTRALINE [Concomitant]
     Active Substance: SERTRALINE HYDROCHLORIDE
     Indication: Product used for unknown indication
     Dosage: UNK
     Route: 065
     Dates: start: 20210703
  9. TOLTERODINE [Concomitant]
     Active Substance: TOLTERODINE
     Indication: Product used for unknown indication
     Dosage: UNK
     Route: 065
     Dates: start: 20150812

REACTIONS (5)
  - Oesophageal candidiasis [Unknown]
  - Oesophageal motility disorder [Unknown]
  - Vomiting [Recovered/Resolved]
  - Confusional state [Unknown]
  - Dysphagia [Unknown]

NARRATIVE: CASE EVENT DATE: 20220701
